FAERS Safety Report 24006539 (Version 1)
Quarter: 2024Q2

REPORT INFORMATION
  Report Type: Spontaneous
  Country: CH (occurrence: CH)
  Receive Date: 20240624
  Receipt Date: 20240624
  Transmission Date: 20240716
  Serious: Yes (Death)
  Sender: FDA-Public Use
  Company Number: CH-Vifor Pharma-VIT-2024-05408

PATIENT
  Sex: Male

DRUGS (1)
  1. DIFELIKEFALIN ACETATE [Suspect]
     Active Substance: DIFELIKEFALIN ACETATE
     Indication: Product used for unknown indication

REACTIONS (1)
  - Neoplasm malignant [Fatal]
